FAERS Safety Report 22971114 (Version 2)
Quarter: 2024Q2

REPORT INFORMATION
  Report Type: Spontaneous
  Country: CA (occurrence: None)
  Receive Date: 20230922
  Receipt Date: 20240410
  Transmission Date: 20240716
  Serious: Yes (Other)
  Sender: FDA-Public Use
  Company Number: CA-PFIZER INC-202300303481

PATIENT
  Age: 57 Year
  Sex: Female

DRUGS (10)
  1. METHOTREXATE [Suspect]
     Active Substance: METHOTREXATE
     Indication: Rheumatoid arthritis
     Dates: start: 201907
  2. METHOTREXATE [Suspect]
     Active Substance: METHOTREXATE
     Dates: start: 202102
  3. METHOTREXATE [Suspect]
     Active Substance: METHOTREXATE
     Dosage: STRENGTH: 2.5 MG
     Dates: start: 20230113
  4. LEFLUNOMIDE [Concomitant]
     Active Substance: LEFLUNOMIDE
     Indication: Product used for unknown indication
     Dates: start: 20230322
  5. FOLIC ACID [Concomitant]
     Active Substance: FOLIC ACID
     Dosage: SIX TIMES/WEEK
     Dates: start: 20230113
  6. FOLIC ACID [Concomitant]
     Active Substance: FOLIC ACID
     Dosage: WEEKLY, Q THURSDAY
  7. GLUCOSAMINE [Concomitant]
     Active Substance: GLUCOSAMINE
  8. XELJANZ [Concomitant]
     Active Substance: TOFACITINIB CITRATE
     Indication: Rheumatoid arthritis
     Dates: start: 201907
  9. XELJANZ [Concomitant]
     Active Substance: TOFACITINIB CITRATE
     Dates: start: 20231020
  10. BARICITINIB [Concomitant]
     Active Substance: BARICITINIB
     Dosage: GOT SOME KIND OF RASH SO SWITCHED TO TOFACITINIB

REACTIONS (6)
  - Sjogren^s syndrome [Unknown]
  - Rash [Unknown]
  - Rheumatoid arthritis [Unknown]
  - Aphthous ulcer [Unknown]
  - Alopecia [Unknown]
  - Malaise [Unknown]

NARRATIVE: CASE EVENT DATE: 20200101
